FAERS Safety Report 4824438-3 (Version None)
Quarter: 2005Q4

REPORT INFORMATION
  Report Type: 
  Country: None (occurrence: None)
  Receive Date: 20051108
  Receipt Date: 20051031
  Transmission Date: 20060501
  Serious: Yes (Disabling, Other)
  Sender: FDA-Public Use
  Company Number: 163-20785-04120345

PATIENT
  Age: 72 Year
  Sex: Female

DRUGS (4)
  1. THALOMID [Suspect]
     Indication: MULTIPLE MYELOMA
     Dosage: SEE IMAGE
     Dates: start: 20040413, end: 20040701
  2. THALOMID [Suspect]
     Indication: MULTIPLE MYELOMA
     Dosage: SEE IMAGE
     Dates: start: 20041210, end: 20050101
  3. ASA (ACETYLSALICYLIC ACID) (UNKNOWN) [Suspect]
     Dosage: 1/4 TABLET WITH EACH THALOMID CAPSULE
     Dates: start: 20041215
  4. VITAMINS (VITAMINS) [Concomitant]

REACTIONS (16)
  - AMNESIA [None]
  - ASTHENIA [None]
  - BALANCE DISORDER [None]
  - BLOOD PRESSURE INCREASED [None]
  - BLOOD PRESSURE SYSTOLIC INCREASED [None]
  - COGNITIVE DISORDER [None]
  - CONDITION AGGRAVATED [None]
  - CONSTIPATION [None]
  - DIFFICULTY IN WALKING [None]
  - HEART RATE DECREASED [None]
  - NEUROPATHY [None]
  - OEDEMA PERIPHERAL [None]
  - SOMNOLENCE [None]
  - TINNITUS [None]
  - TREMOR [None]
  - VISUAL DISTURBANCE [None]
